FAERS Safety Report 12220854 (Version 3)
Quarter: 2016Q2

REPORT INFORMATION
  Report Type: Spontaneous
  Country: US (occurrence: US)
  Receive Date: 20160330
  Receipt Date: 20160524
  Transmission Date: 20160815
  Serious: No
  Sender: FDA-Public Use
  Company Number: US-PFIZER INC-2016132793

PATIENT
  Age: 66 Year
  Sex: Female
  Weight: 77 kg

DRUGS (19)
  1. UBIQUINOL CO Q10 [Concomitant]
     Indication: SUPPLEMENTATION THERAPY
     Dosage: 100 MG, 1X/DAY, IN THE MORNING
     Route: 048
  2. VITAMIN B COMPLEX [Concomitant]
     Active Substance: CYANOCOBALAMIN\DEXPANTHENOL\NIACINAMIDE\PYRIDOXINE HYDROCHLORIDE\RIBOFLAVIN 5^-PHOSPHATE SODIUM\THIAMINE HYDROCHLORIDE\VITAMIN B COMPLEX
     Indication: FATIGUE
     Dosage: 1 DF, 2X/DAY
     Dates: start: 2015
  3. PEPCID AC [Concomitant]
     Active Substance: FAMOTIDINE
     Indication: GASTRIC DISORDER
     Dosage: 20 MG, 1X/DAY, IN EVENING
     Route: 048
  4. CARVEDILOL. [Concomitant]
     Active Substance: CARVEDILOL
     Indication: BLOOD PRESSURE ABNORMAL
     Dosage: 12.5 MG, UNK
  5. OMEGA 3 FISH OIL /01334101/ [Concomitant]
     Active Substance: FISH OIL
     Indication: SUPPLEMENTATION THERAPY
     Dosage: 2 DF, 1X/DAY
     Route: 048
  6. OSTEO BI-FLEX /01431201/ [Concomitant]
     Indication: INFLAMMATION
     Dosage: 1 DF, 2X/DAY
     Route: 048
  7. ENTERIC ASPIRIN [Concomitant]
     Active Substance: ASPIRIN
     Indication: ANTICOAGULANT THERAPY
     Dosage: 81 MG, 1X/DAY, IN EVENING
     Route: 048
  8. CARVEDILOL. [Concomitant]
     Active Substance: CARVEDILOL
     Dosage: 6.25 MG, 2X/DAY
     Dates: start: 2015
  9. CELECOXIB. [Concomitant]
     Active Substance: CELECOXIB
     Indication: INFLAMMATION
     Dosage: 100 MG, 2X/DAY
     Route: 048
  10. JANTOVEN [Concomitant]
     Active Substance: WARFARIN SODIUM
     Indication: ANTICOAGULANT THERAPY
     Dosage: 8 MG, 1X/DAY, (1) 5MG AND (3) 1MG TABLETS ADJUSTED ACCORDING TO NEED
     Route: 048
     Dates: start: 2008
  11. TIKOSYN [Suspect]
     Active Substance: DOFETILIDE
     Indication: SINUS ARRHYTHMIA
     Dosage: 500 UG, 2X/DAY
     Route: 048
     Dates: start: 20160210
  12. CARVEDILOL. [Concomitant]
     Active Substance: CARVEDILOL
     Dosage: 12.5 MG, UNK
  13. CLOBETASOL PROPIONATE. [Concomitant]
     Active Substance: CLOBETASOL PROPIONATE
     Indication: PSORIATIC ARTHROPATHY
     Dosage: 0.05 %, AS NEEDED
     Dates: start: 2012
  14. NORCO [Concomitant]
     Active Substance: ACETAMINOPHEN\HYDROCODONE BITARTRATE
     Indication: PAIN
     Dosage: 5/325 MG, 1X/DAY, AT NIGHT
  15. VITAMIN B12 [Concomitant]
     Active Substance: CYANOCOBALAMIN
     Indication: FATIGUE
     Dosage: 1 DF, 1X/DAY, IN THE MORNING
     Route: 060
     Dates: start: 2015
  16. ZINC [Concomitant]
     Active Substance: ZINC\ZINC CHLORIDE
     Indication: INFECTION PROPHYLAXIS
     Dosage: 50 MG, 1X/DAY, IN THE EVENING
     Route: 048
     Dates: start: 2015
  17. TAZTIA XT [Concomitant]
     Active Substance: DILTIAZEM HYDROCHLORIDE
     Dosage: 240 MG, UNK
  18. HYDROCORTISONE. [Concomitant]
     Active Substance: HYDROCORTISONE
     Indication: PSORIATIC ARTHROPATHY
     Dosage: 2.5 %, AS NEEDED
     Dates: start: 201509
  19. VITAMIN D /00107901/ [Concomitant]
     Active Substance: ERGOCALCIFEROL
     Indication: VITAMIN D DECREASED
     Dosage: 2000 IU, 1X/DAY, IN THE EVENING
     Route: 048

REACTIONS (2)
  - Drug ineffective [Not Recovered/Not Resolved]
  - Blood pressure increased [Unknown]

NARRATIVE: CASE EVENT DATE: 201602
